FAERS Safety Report 19475666 (Version 6)
Quarter: 2022Q2

REPORT INFORMATION
  Report Type: Report from Study
  Country: NL (occurrence: NL)
  Receive Date: 20210630
  Receipt Date: 20220404
  Transmission Date: 20220720
  Serious: Yes (Hospitalization, Other)
  Sender: FDA-Public Use
  Company Number: NVSC2019NL024241

PATIENT
  Age: 49 Year
  Sex: Female
  Weight: 75 kg

DRUGS (3)
  1. GILENYA [Suspect]
     Active Substance: FINGOLIMOD HYDROCHLORIDE
     Indication: Multiple sclerosis
     Dosage: 1 DOSAGE FORM, QD
     Route: 048
     Dates: start: 20190318
  2. CLONAZEPAM [Concomitant]
     Active Substance: CLONAZEPAM
     Indication: Product used for unknown indication
     Dosage: UNK
     Route: 065
  3. PANTOPRAZOLE [Concomitant]
     Active Substance: PANTOPRAZOLE
     Indication: Product used for unknown indication
     Route: 065

REACTIONS (23)
  - Migraine [Recovered/Resolved]
  - Aura [Recovered/Resolved]
  - Photopsia [Recovered/Resolved]
  - Headache [Recovered/Resolved]
  - Blindness unilateral [Unknown]
  - Multiple sclerosis relapse [Recovered/Resolved]
  - Optic neuritis [Recovered/Resolved with Sequelae]
  - Illness [Unknown]
  - Negativism [Unknown]
  - Visual impairment [Not Recovered/Not Resolved]
  - Visual acuity reduced [Unknown]
  - Photophobia [Unknown]
  - Eye pain [Unknown]
  - Ocular discomfort [Unknown]
  - Hypertension [Unknown]
  - Nausea [Unknown]
  - Vision blurred [Unknown]
  - Migraine [Unknown]
  - Coronavirus infection [Recovering/Resolving]
  - Influenza [Recovering/Resolving]
  - Headache [Unknown]
  - Fatigue [Unknown]
  - Inappropriate schedule of product administration [Unknown]

NARRATIVE: CASE EVENT DATE: 20210328
